FAERS Safety Report 25566298 (Version 1)
Quarter: 2025Q3

REPORT INFORMATION
  Report Type: Other
  Country: JP (occurrence: JP)
  Receive Date: 20250716
  Receipt Date: 20250716
  Transmission Date: 20251020
  Serious: Yes (Hospitalization)
  Sender: LYNE LABORATORIES
  Company Number: JP-Lyne Laboratories Inc.-2180611

PATIENT
  Age: 10 Year
  Sex: Female

DRUGS (1)
  1. CHLORHEXIDINE GLUCONATE [Suspect]
     Active Substance: CHLORHEXIDINE GLUCONATE
     Indication: Device related infection

REACTIONS (3)
  - Dermatitis contact [Recovering/Resolving]
  - Product use in unapproved indication [Unknown]
  - Hypertrophic scar [Not Recovered/Not Resolved]
